FAERS Safety Report 13827440 (Version 4)
Quarter: 2021Q2

REPORT INFORMATION
  Report Type: Report from Study
  Country: CA (occurrence: CA)
  Receive Date: 20170802
  Receipt Date: 20210430
  Transmission Date: 20210716
  Serious: Yes (Hospitalization, Other)
  Sender: FDA-Public Use
  Company Number: CA-TAKEDA-2017TUS015687

PATIENT
  Age: 40 Year
  Sex: Female

DRUGS (2)
  1. VEDOLIZUMAB [Suspect]
     Active Substance: VEDOLIZUMAB
     Indication: CROHN^S DISEASE
     Dosage: 300 MILLIGRAM
     Route: 042
     Dates: start: 20160719
  2. VEDOLIZUMAB [Suspect]
     Active Substance: VEDOLIZUMAB
     Dosage: 300 MILLIGRAM
     Route: 042

REACTIONS (13)
  - Abdominal pain [Not Recovered/Not Resolved]
  - Stress at work [Unknown]
  - Frequent bowel movements [Unknown]
  - Secretion discharge [Unknown]
  - Infection [Unknown]
  - Stress urinary incontinence [Unknown]
  - Septic shock [Unknown]
  - Vertigo [Unknown]
  - Anal incontinence [Unknown]
  - Abdominal discomfort [Unknown]
  - Obstruction [Unknown]
  - Migraine [Unknown]
  - Defaecation urgency [Unknown]

NARRATIVE: CASE EVENT DATE: 201707
